FAERS Safety Report 4389607-8 (Version None)
Quarter: 2004Q2

REPORT INFORMATION
  Report Type: 
  Country: None (occurrence: None)
  Receive Date: 20040629
  Receipt Date: 20040420
  Transmission Date: 20050107
  Serious: No
  Sender: FDA-Public Use
  Company Number: US-JNJFOC-20040203810

PATIENT
  Age: 61 Year
  Sex: Female

DRUGS (25)
  1. DURAGESIC (FENTALYL) PATCH [Suspect]
     Indication: PAIN
     Dosage: 25 UG/HR, 1 IN 72 HOUR, TRANSDERMAL
     Route: 062
     Dates: start: 20031120
  2. DURAGESIC (FENTALYL) PATCH [Suspect]
     Dosage: SEE IMAGE
     Route: 062
     Dates: end: 20040203
  3. DURAGESIC (FENTALYL) PATCH [Suspect]
     Dosage: SEE IMAGE
     Route: 062
     Dates: start: 20031120
  4. .... [Concomitant]
  5. NARPON (ALL OTHER THERAPEUTIC PRODUCTS) [Concomitant]
  6. POTASSIUM (POTASSIUM) [Concomitant]
  7. TUMS (CALCIUM CARBONATE) [Concomitant]
  8. PREVACID [Concomitant]
  9. KLONOPIN [Concomitant]
  10. NEURONTIN [Concomitant]
  11. DIAZEPAM (DIAZEPAM) TABLETS [Concomitant]
  12. DARVOCET-N 100 [Concomitant]
  13. NEURONTIN (GABAPENTIN) TABLETS [Concomitant]
  14. FLOVENT [Concomitant]
  15. FLUOXETINE HCL (FLUOXETINE HYDROCHLORIDE) CAPSULES [Concomitant]
  16. SYNTHROID (LEVOTHYROXINE SODIUM) TABLETS [Concomitant]
  17. SEREVENT DISKUS (SALMETEROL XINAFOATE) [Concomitant]
  18. NICOTROL (NICOTINE) [Concomitant]
  19. ALBUTEROL SULFATE [Concomitant]
  20. COMBIVENT [Concomitant]
  21. VITAMIN B12 [Concomitant]
  22. PRILOSEC [Concomitant]
  23. NIFEREX-150 (POLYSACCHARIDE-IRON COMPLEX) CAPSULES [Concomitant]
  24. LASIX [Concomitant]
  25. TRAMADOL HCL [Concomitant]

REACTIONS (11)
  - ASTHENIA [None]
  - ASTHMA [None]
  - DYSPNOEA [None]
  - FALL [None]
  - IMPAIRED DRIVING ABILITY [None]
  - MENTAL IMPAIRMENT [None]
  - OEDEMA PERIPHERAL [None]
  - PANIC ATTACK [None]
  - SPEECH DISORDER [None]
  - TREMOR [None]
  - UNEVALUABLE EVENT [None]
